FAERS Safety Report 9431761 (Version 1)
Quarter: 2013Q3

REPORT INFORMATION
  Report Type: Spontaneous
  Country: GB (occurrence: GB)
  Receive Date: 20130731
  Receipt Date: 20130731
  Transmission Date: 20140515
  Serious: Yes (Other)
  Sender: FDA-Public Use
  Company Number: GB-JNJFOC-20130713525

PATIENT
  Sex: Female

DRUGS (2)
  1. NICORETTE INVISI 25MG PATCH [Suspect]
     Route: 062
  2. NICORETTE INVISI 25MG PATCH [Suspect]
     Indication: PRODUCT USED FOR UNKNOWN INDICATION
     Route: 062

REACTIONS (1)
  - Local swelling [Recovering/Resolving]
